FAERS Safety Report 5263433-X (Version None)
Quarter: 2007Q1

REPORT INFORMATION
  Report Type: 
  Country: None (occurrence: None)
  Receive Date: 20070313
  Receipt Date: 20070306
  Transmission Date: 20070707
  Serious: Yes (Life-Threatening)
  Sender: FDA-Public Use
  Company Number: 2007GB00491

PATIENT
  Age: 65 Year
  Sex: Male
  Weight: 80 kg

DRUGS (11)
  1. QUETIAPINE FUMARATE [Suspect]
     Indication: AGITATION
     Route: 048
     Dates: start: 20070122, end: 20070209
  2. AMOXICILLIN [Concomitant]
     Dates: start: 20070103
  3. CLEXANE [Concomitant]
     Route: 058
     Dates: start: 20061204
  4. CREON [Concomitant]
     Dates: start: 20061227
  5. HALOPERIDOL [Concomitant]
     Dates: start: 20070106
  6. METHYLPREDNISOLONE 16MG TAB [Concomitant]
     Dates: start: 20070107
  7. ACETAMINOPHEN [Concomitant]
     Route: 042
     Dates: start: 20061203
  8. RAMIPRIL [Concomitant]
     Dates: start: 20061203
  9. RANITIDINE [Concomitant]
  10. VANCOMYCIN HYDROCHLORIDE [Concomitant]
     Dates: start: 20061229
  11. ZOPICLONE [Concomitant]
     Route: 048
     Dates: start: 20070108

REACTIONS (2)
  - NEUTROPENIA [None]
  - PLATELET COUNT DECREASED [None]
